FAERS Safety Report 5396705-9 (Version None)
Quarter: 2007Q3

REPORT INFORMATION
  Report Type: 
  Country: None (occurrence: None)
  Receive Date: 20070725
  Receipt Date: 20060808
  Transmission Date: 20080115
  Serious: No
  Sender: FDA-Public Use
  Company Number: US-AMGEN-KDL189319

PATIENT
  Age: 44 Year
  Sex: Female

DRUGS (11)
  1. EPOGEN [Suspect]
     Indication: DIALYSIS
     Route: 042
     Dates: start: 20020801
  2. LANTUS [Concomitant]
     Route: 065
  3. HUMALOG [Concomitant]
     Route: 065
  4. NORVASC [Concomitant]
     Route: 065
  5. METOPROLOL SUCCINATE [Concomitant]
     Route: 065
  6. LISINOPRIL [Concomitant]
     Route: 065
  7. CLONIDINE [Concomitant]
     Route: 065
  8. TYLENOL W/ CODEINE NO. 4 [Concomitant]
     Route: 065
  9. SENNA [Concomitant]
     Route: 065
  10. EXCEDRIN [Concomitant]
     Route: 065
  11. RENAGEL [Concomitant]
     Route: 065

REACTIONS (2)
  - PYREXIA [None]
  - THERAPEUTIC RESPONSE DECREASED [None]
